FAERS Safety Report 24109308 (Version 1)
Quarter: 2024Q3

REPORT INFORMATION
  Report Type: Spontaneous
  Country: US (occurrence: US)
  Receive Date: 20240718
  Receipt Date: 20240718
  Transmission Date: 20241017
  Serious: Yes (Hospitalization)
  Sender: MYLAN
  Company Number: US-MYLANLABS-2024M1066230

PATIENT
  Age: 59 Year
  Sex: Male

DRUGS (5)
  1. LITHIUM [Suspect]
     Active Substance: LITHIUM
     Indication: Schizoaffective disorder bipolar type
     Dosage: 900 MILLIGRAM, QD
     Route: 065
  2. LITHIUM [Suspect]
     Active Substance: LITHIUM
     Dosage: 300 MILLIGRAM, QD
     Route: 065
  3. SERTRALINE [Suspect]
     Active Substance: SERTRALINE HYDROCHLORIDE
     Indication: Schizoaffective disorder bipolar type
     Dosage: 200 MILLIGRAM
     Route: 065
  4. CAFFEINE [Suspect]
     Active Substance: CAFFEINE
     Indication: Product used for unknown indication
     Dosage: UNK; STANDARD DAILY CAFFEINE INTAKE WAS ESTIMATED TO BE 1,027?MG
     Route: 065
  5. RISPERIDONE [Concomitant]
     Active Substance: RISPERIDONE
     Indication: Schizoaffective disorder bipolar type
     Dosage: 5 MILLIGRAM
     Route: 065

REACTIONS (4)
  - Drug ineffective for unapproved indication [Unknown]
  - Food interaction [Unknown]
  - Drug level above therapeutic [Unknown]
  - Off label use [Unknown]
